FAERS Safety Report 16876213 (Version 2)
Quarter: 2019Q4

REPORT INFORMATION
  Report Type: Spontaneous
  Country: US (occurrence: US)
  Receive Date: 20191002
  Receipt Date: 20191205
  Transmission Date: 20200122
  Serious: No
  Sender: FDA-Public Use
  Company Number: US-GW PHARMA-201909USGW3219

PATIENT

DRUGS (7)
  1. LAMOTRIGINE. [Concomitant]
     Active Substance: LAMOTRIGINE
     Indication: PRODUCT USED FOR UNKNOWN INDICATION
     Dosage: UNK
     Route: 065
  2. CYPRO [Concomitant]
     Indication: PRODUCT USED FOR UNKNOWN INDICATION
     Dosage: UNK
     Route: 065
  3. FELBATOL [Concomitant]
     Active Substance: FELBAMATE
     Indication: PRODUCT USED FOR UNKNOWN INDICATION
     Dosage: UNK
     Route: 065
  4. EPIDIOLEX [Suspect]
     Active Substance: CANNABIDIOL
     Indication: LENNOX-GASTAUT SYNDROME
     Dosage: 5.97 MG/KG/DAY, 290 MILLIGRAM, QD (1.5 ML IN THE MORNING AND  1.4 ML IN THE EVENING)
     Route: 048
     Dates: start: 20190115, end: 2019
  5. CLOBAZAM. [Concomitant]
     Active Substance: CLOBAZAM
     Indication: PRODUCT USED FOR UNKNOWN INDICATION
     Dosage: UNK
     Route: 065
  6. BANZEL [Concomitant]
     Active Substance: RUFINAMIDE
     Indication: PRODUCT USED FOR UNKNOWN INDICATION
     Dosage: UNK
     Route: 065
  7. EPIDIOLEX [Suspect]
     Active Substance: CANNABIDIOL
     Dosage: 6.18 MG/KG/DAY, 150 MILLIGRAM, BID
     Route: 048
     Dates: start: 2019

REACTIONS (5)
  - Urinary tract infection [Recovering/Resolving]
  - Urinary retention [Recovering/Resolving]
  - Drug ineffective [Unknown]
  - Seizure [Recovering/Resolving]
  - Multiple use of single-use product [Unknown]

NARRATIVE: CASE EVENT DATE: 2019
